FAERS Safety Report 15391607 (Version 1)
Quarter: 2018Q3

REPORT INFORMATION
  Report Type: Spontaneous
  Country: US (occurrence: US)
  Receive Date: 20180917
  Receipt Date: 20180917
  Transmission Date: 20181010
  Serious: Yes (Other)
  Sender: FDA-Public Use
  Company Number: US-MYLANLABS-2018M1066723

PATIENT
  Age: 12 Year
  Sex: Female
  Weight: 59 kg

DRUGS (1)
  1. EPINEPHRINE INJECTION USP AUTO?INJECTOR [Suspect]
     Active Substance: EPINEPHRINE
     Indication: FOOD ALLERGY
     Dosage: UNK

REACTIONS (2)
  - Underdose [Unknown]
  - Device failure [Recovered/Resolved]

NARRATIVE: CASE EVENT DATE: 20180825
